FAERS Safety Report 4750870-2 (Version None)
Quarter: 2005Q3

REPORT INFORMATION
  Report Type: 
  Country: None (occurrence: None)
  Receive Date: 20050822
  Receipt Date: 20050810
  Transmission Date: 20060218
  Serious: Yes (Other)
  Sender: FDA-Public Use
  Company Number: MK200508-0176-1

PATIENT
  Age: 90 Year
  Sex: Male

DRUGS (1)
  1. NEUTROSPEC [Suspect]
     Indication: OSTEOMYELITIS
     Dosage: 20 MCI, ONE TIME, IV
     Route: 042
     Dates: start: 20050810, end: 20050810

REACTIONS (2)
  - HYPERHIDROSIS [None]
  - LOSS OF CONSCIOUSNESS [None]
